FAERS Safety Report 7367835-7 (Version None)
Quarter: 2011Q1

REPORT INFORMATION
  Report Type: 
  Country: None (occurrence: None)
  Receive Date: 20110322
  Receipt Date: 20110311
  Transmission Date: 20110831
  Serious: Yes (Other)
  Sender: FDA-Public Use
  Company Number: US-ASTRAZENECA-2011SE14092

PATIENT
  Age: 49 Year
  Sex: Female

DRUGS (1)
  1. SEROQUEL [Suspect]
     Route: 048

REACTIONS (4)
  - SPINAL FRACTURE [None]
  - DEPRESSION [None]
  - UPPER LIMB FRACTURE [None]
  - LOWER LIMB FRACTURE [None]
